FAERS Safety Report 5389228-4 (Version None)
Quarter: 2007Q3

REPORT INFORMATION
  Report Type: 
  Country: None (occurrence: None)
  Receive Date: 20070717
  Receipt Date: 20070712
  Transmission Date: 20080115
  Serious: Yes (Other)
  Sender: FDA-Public Use
  Company Number: A0635884A

PATIENT
  Sex: Female

DRUGS (1)
  1. PAROXETINE [Suspect]
     Indication: PANIC DISORDER
     Dosage: 20MG PER DAY
     Route: 048
     Dates: start: 20050601, end: 20070103

REACTIONS (1)
  - ABORTION SPONTANEOUS [None]
